FAERS Safety Report 20710936 (Version 1)
Quarter: 2022Q2

REPORT INFORMATION
  Report Type: Spontaneous
  Country: US (occurrence: None)
  Receive Date: 20220414
  Receipt Date: 20220414
  Transmission Date: 20220721
  Serious: No
  Sender: FDA-Public Use
  Company Number: None

PATIENT

DRUGS (1)
  1. LEVOPHED [Suspect]
     Active Substance: NOREPINEPHRINE BITARTRATE

REACTIONS (2)
  - Blood pressure decreased [None]
  - Device malfunction [None]

NARRATIVE: CASE EVENT DATE: 20211124
